FAERS Safety Report 11716640 (Version 3)
Quarter: 2015Q4

REPORT INFORMATION
  Report Type: Report from Study
  Country: JP (occurrence: JP)
  Receive Date: 20151109
  Receipt Date: 20151124
  Transmission Date: 20160304
  Serious: Yes (Death, Life-Threatening, Hospitalization)
  Sender: FDA-Public Use
  Company Number: JP-TEVA-508787USA

PATIENT
  Age: 73 Year
  Sex: Female

DRUGS (18)
  1. BACTAR [Concomitant]
     Active Substance: SULFAMERAZINE\TRIMETHOPRIM
     Indication: INFECTION
     Dosage: 400/80 MG ONCE A DAY
     Route: 048
  2. SULFAMETHOXAZOLE AND TRIMETHOPRIM [Concomitant]
     Active Substance: SULFAMETHOXAZOLE\TRIMETHOPRIM
     Indication: PRODUCT USED FOR UNKNOWN INDICATION
     Route: 048
  3. HACHIAZULE                         /00523101/ [Concomitant]
     Indication: MUCOSAL INFLAMMATION
     Dosage: UNK UNK, ONCE DAILY
     Route: 061
     Dates: start: 20150128
  4. POLARAMIN [Concomitant]
     Active Substance: DEXCHLORPHENIRAMINE MALEATE
     Indication: PREMEDICATION
     Route: 048
     Dates: start: 20140723
  5. LEVOFLOXACIN. [Concomitant]
     Active Substance: LEVOFLOXACIN
     Indication: PRODUCT USED FOR UNKNOWN INDICATION
     Route: 061
  6. BENDAMUSTINE HYDROCHLORIDE [Suspect]
     Active Substance: BENDAMUSTINE HYDROCHLORIDE
     Indication: B-CELL LYMPHOMA
     Route: 042
     Dates: start: 20140723
  7. HALCION [Concomitant]
     Active Substance: TRIAZOLAM
     Indication: INSOMNIA
     Dosage: 0.25 MG, AS NEEDED
     Route: 048
  8. CALONAL [Concomitant]
     Active Substance: ACETAMINOPHEN
     Indication: PREMEDICATION
     Route: 048
     Dates: start: 20140723
  9. EVERSCHELLIN [Concomitant]
     Indication: BOWEL MOVEMENT IRREGULARITY
     Dosage: 1 IN 1, AS NEEDED
     Route: 048
  10. RITUXIMAB [Suspect]
     Active Substance: RITUXIMAB
     Indication: B-CELL LYMPHOMA
     Route: 042
     Dates: start: 20140723
  11. ACICLOVIR [Concomitant]
     Active Substance: ACYCLOVIR
     Indication: INFECTION
     Route: 048
  12. HACHIAZULE                         /00523101/ [Concomitant]
     Dosage: UNK UNK, ONCE DAILY
     Route: 061
     Dates: start: 20150317
  13. IBRUTINIB [Suspect]
     Active Substance: IBRUTINIB
     Indication: B-CELL LYMPHOMA
     Route: 048
     Dates: start: 20140723, end: 20150105
  14. CRESTOR [Concomitant]
     Active Substance: ROSUVASTATIN CALCIUM
     Indication: HYPERLIPIDAEMIA
     Route: 048
  15. ZOLPIDEM [Concomitant]
     Active Substance: ZOLPIDEM\ZOLPIDEM TARTRATE
     Indication: INSOMNIA
     Route: 048
     Dates: start: 20140721
  16. ALOXI [Concomitant]
     Active Substance: PALONOSETRON HYDROCHLORIDE
     Indication: PROPHYLAXIS OF NAUSEA AND VOMITING
     Dosage: 0.75 MG, ONCE DAILY
     Route: 041
     Dates: start: 20140723
  17. ZOPICLONE [Concomitant]
     Active Substance: ZOPICLONE
     Indication: INSOMNIA
     Route: 048
     Dates: start: 20140724
  18. ALOXI [Concomitant]
     Active Substance: PALONOSETRON HYDROCHLORIDE
     Dosage: 0.75 MG, CYCLIC
     Route: 042
     Dates: start: 20140723

REACTIONS (2)
  - Bacterial infection [Recovered/Resolved]
  - Cardio-respiratory arrest [Fatal]

NARRATIVE: CASE EVENT DATE: 20140821
